FAERS Safety Report 6644685-8 (Version None)
Quarter: 2010Q1

REPORT INFORMATION
  Report Type: 
  Country: None (occurrence: None)
  Receive Date: 20100322
  Receipt Date: 20100318
  Transmission Date: 20100710
  Serious: Yes (Hospitalization)
  Sender: FDA-Public Use
  Company Number: FR-BRISTOL-MYERS SQUIBB COMPANY-15012008

PATIENT
  Age: 78 Year
  Sex: Male

DRUGS (5)
  1. GLUCOPHAGE [Suspect]
     Indication: TYPE 2 DIABETES MELLITUS
     Dosage: COATED TABS
     Route: 048
     Dates: end: 20091031
  2. CAPTOPRIL [Suspect]
     Indication: HYPERTENSION
     Dosage: 1DF
  3. ECAZIDE [Suspect]
     Indication: HYPERTENSION
     Dosage: 1DF = 1CAP
  4. PLAVIX [Suspect]
  5. HEMI-DAONIL [Suspect]
     Indication: TYPE 2 DIABETES MELLITUS

REACTIONS (2)
  - LACTIC ACIDOSIS [None]
  - RENAL FAILURE ACUTE [None]
